FAERS Safety Report 6242419-2 (Version None)
Quarter: 2009Q2

REPORT INFORMATION
  Report Type: 
  Country: None (occurrence: None)
  Receive Date: 20090622
  Receipt Date: 20090622
  Transmission Date: 20091009
  Serious: No
  Sender: FDA-Public Use
  Company Number: None

PATIENT
  Age: 39 Year
  Sex: Female
  Weight: 61.6892 kg

DRUGS (1)
  1. LAMISIL [Suspect]
     Indication: ONYCHOMYCOSIS
     Dosage: ONE TABLET DAILY PO
     Route: 048
     Dates: start: 20090516, end: 20090616

REACTIONS (2)
  - AGEUSIA [None]
  - DYSGEUSIA [None]
